FAERS Safety Report 4513744-8 (Version None)
Quarter: 2004Q4

REPORT INFORMATION
  Report Type: 
  Country: None (occurrence: None)
  Receive Date: 20041124
  Receipt Date: 20041101
  Transmission Date: 20050328
  Serious: Yes (Hospitalization)
  Sender: FDA-Public Use
  Company Number: WAES 0307GBR00186

PATIENT
  Age: 71 Year
  Sex: Male

DRUGS (20)
  1. COZAAR [Suspect]
     Indication: CARDIAC FAILURE
     Dosage: PO
     Route: 048
     Dates: start: 20030424, end: 20030814
  2. COZAAR [Suspect]
     Indication: CARDIAC FAILURE
     Dosage: PO
     Route: 048
     Dates: start: 20030801
  3. PROSCAR [Concomitant]
  4. ACETAMINOPHEN AND CODEINE PHOSPHATE [Concomitant]
  5. ALUMINUM HYDROXIDE [Concomitant]
  6. ATENOLOL [Concomitant]
  7. ATORVASTATIN CALCIUM [Concomitant]
  8. CLOPIDOGREL BISULTAFE [Concomitant]
  9. DANTHRON/DOCUSATE [Concomitant]
  10. DIAZEPAM [Concomitant]
  11. DIMETHICONE (+) HYDROTALCITE [Concomitant]
  12. FERROUS SO4 [Concomitant]
  13. FUROSEMIDE [Concomitant]
  14. GLICLAZIDE [Concomitant]
  15. ISOSORBIDE MONONITRATE [Concomitant]
  16. LACTULOSE [Concomitant]
  17. NICORANDIL [Concomitant]
  18. NITROGLYCERIN [Concomitant]
  19. OMEPRAZOLE [Concomitant]
  20. SPIRONOLACTONE [Concomitant]

REACTIONS (18)
  - ANAEMIA [None]
  - BASOPHIL COUNT DECREASED [None]
  - BLOOD ALBUMIN DECREASED [None]
  - BLOOD CHOLESTEROL DECREASED [None]
  - BLOOD UREA INCREASED [None]
  - BLOOD URIC ACID INCREASED [None]
  - CHEST PAIN [None]
  - DIZZINESS [None]
  - DYSPEPSIA [None]
  - DYSPNOEA EXERTIONAL [None]
  - FAECES DISCOLOURED [None]
  - GASTRIC ANTRAL VASCULAR ECTASIA [None]
  - GASTROINTESTINAL ANGIODYSPLASIA [None]
  - MEAN CELL HAEMOGLOBIN INCREASED [None]
  - MEAN CELL VOLUME INCREASED [None]
  - MEDICATION ERROR [None]
  - PURPURA [None]
  - RECTAL HAEMORRHAGE [None]
